FAERS Safety Report 23838836 (Version 3)
Quarter: 2024Q4

REPORT INFORMATION
  Report Type: Spontaneous
  Country: US (occurrence: US)
  Receive Date: 20240509
  Receipt Date: 20241106
  Transmission Date: 20250115
  Serious: Yes (Hospitalization, Other)
  Sender: ARGENX BVBA
  Company Number: US-ARGENX-2024-ARGX-US002933

PATIENT

DRUGS (2)
  1. EFGARTIGIMOD ALFA-FCAB [Suspect]
     Active Substance: EFGARTIGIMOD ALFA-FCAB
     Indication: Myasthenia gravis
     Dosage: UNK. 4 WEEKS ON/14 DAYS OFF
     Route: 042
     Dates: start: 20220215
  2. TRULICITY [Concomitant]
     Active Substance: DULAGLUTIDE
     Indication: Type 2 diabetes mellitus
     Dosage: UNK
     Route: 058

REACTIONS (10)
  - Syncope [Recovered/Resolved]
  - Illness [Recovering/Resolving]
  - Supraventricular tachycardia [Recovering/Resolving]
  - Tunnel vision [Not Recovered/Not Resolved]
  - Vitreous floaters [Not Recovered/Not Resolved]
  - Dehydration [Recovered/Resolved]
  - Asthenia [Not Recovered/Not Resolved]
  - Feeling abnormal [Not Recovered/Not Resolved]
  - Exposure to communicable disease [Unknown]
  - Gastroenteritis viral [Recovered/Resolved]

NARRATIVE: CASE EVENT DATE: 20240428
